FAERS Safety Report 15615960 (Version 1)
Quarter: 2018Q4

REPORT INFORMATION
  Report Type: Spontaneous
  Country: US (occurrence: US)
  Receive Date: 20181114
  Receipt Date: 20181114
  Transmission Date: 20190205
  Serious: No
  Sender: FDA-Public Use
  Company Number: US-ASTRAZENECA-2018SF37844

PATIENT
  Sex: Female
  Weight: 54 kg

DRUGS (3)
  1. DEPAKOTE [Concomitant]
     Active Substance: DIVALPROEX SODIUM
  2. TEGRETOL [Concomitant]
     Active Substance: CARBAMAZEPINE
     Indication: EPILEPSY
     Route: 048
  3. SYMBICORT [Suspect]
     Active Substance: BUDESONIDE\FORMOTEROL FUMARATE DIHYDRATE
     Indication: BRONCHITIS
     Dosage: , ONE INHALATION TWICE A DAY
     Route: 055
     Dates: start: 201809

REACTIONS (6)
  - Device issue [Unknown]
  - Accidental exposure to product [Unknown]
  - Depression [Recovering/Resolving]
  - Weight decreased [Recovering/Resolving]
  - Hypophagia [Recovering/Resolving]
  - Off label use [Unknown]
